FAERS Safety Report 6168943-9 (Version None)
Quarter: 2009Q2

REPORT INFORMATION
  Report Type: 
  Country: None (occurrence: None)
  Receive Date: 20090427
  Receipt Date: 20090423
  Transmission Date: 20091009
  Serious: Yes (Life-Threatening)
  Sender: FDA-Public Use
  Company Number: JP-JNJFOC-20090405946

PATIENT
  Age: 77 Year
  Sex: Male

DRUGS (5)
  1. RISPERDAL [Suspect]
     Indication: DELIRIUM
     Route: 048
  2. FENTANYL [Suspect]
     Indication: DRUG USE FOR UNKNOWN INDICATION
  3. HUMULIN R [Concomitant]
     Indication: DIABETES MELLITUS
     Route: 065
  4. CEFAMEZIN [Concomitant]
     Indication: DRUG USE FOR UNKNOWN INDICATION
     Route: 065
  5. GENERAL ANESTHETICS [Concomitant]
     Indication: SURGERY
     Route: 065

REACTIONS (3)
  - ARRHYTHMIA [None]
  - CEREBROVASCULAR DISORDER [None]
  - RESPIRATORY DEPRESSION [None]
